FAERS Safety Report 18639914 (Version 1)
Quarter: 2020Q4

REPORT INFORMATION
  Report Type: Spontaneous
  Country: US (occurrence: US)
  Receive Date: 20201220
  Receipt Date: 20201220
  Transmission Date: 20210114
  Serious: No
  Sender: FDA-Public Use
  Company Number: US-PACIRA-202000007

PATIENT

DRUGS (3)
  1. EPINEPHRINE. [Suspect]
     Active Substance: EPINEPHRINE
     Indication: NERVE BLOCK
     Dosage: 10 ML EXPAREL DILUTED WITH 10 OR 20 ML OF 0.25% OR 0.5% BUPIVACAINE WITH OR WITHOUT EPINEPHRINE
     Route: 065
  2. EXPAREL [Suspect]
     Active Substance: BUPIVACAINE
     Indication: NERVE BLOCK
     Dosage: 10 ML EXPAREL DILUTED WITH 10 OR 20 ML OF 0.25% OR 0.5% BUPIVACAINE WITH OR WITHOUT EPINEPHRINE
     Route: 065
  3. BUPIVACAINE. [Suspect]
     Active Substance: BUPIVACAINE
     Indication: NERVE BLOCK
     Dosage: 10 ML EXPAREL DILUTED WITH 10 OR 20 ML OF 0.25% OR 0.5% BUPIVACAINE WITH OR WITHOUT EPINEPHRINE
     Route: 065

REACTIONS (2)
  - Therapeutic product effect variable [Unknown]
  - Labelled drug-drug interaction issue [Unknown]
